FAERS Safety Report 18697738 (Version 1)
Quarter: 2021Q1

REPORT INFORMATION
  Report Type: Spontaneous
  Country: US (occurrence: US)
  Receive Date: 20210105
  Receipt Date: 20210105
  Transmission Date: 20210419
  Serious: Yes (Other)
  Sender: FDA-Public Use
  Company Number: US-DRREDDYS-USA/USA/21/0130712

PATIENT
  Age: 32 Year
  Sex: Male

DRUGS (2)
  1. PREDNISONE. [Concomitant]
     Active Substance: PREDNISONE
     Indication: PRODUCT USED FOR UNKNOWN INDICATION
  2. VALGANCICLOVIR. [Suspect]
     Active Substance: VALGANCICLOVIR
     Indication: HIV INFECTION

REACTIONS (5)
  - Proctitis [Unknown]
  - Immune reconstitution inflammatory syndrome [Unknown]
  - Kaposi^s sarcoma [Unknown]
  - Cytomegalovirus infection [Unknown]
  - Condition aggravated [Unknown]
